FAERS Safety Report 15018060 (Version 1)
Quarter: 2018Q2

REPORT INFORMATION
  Report Type: Spontaneous
  Country: GR (occurrence: GR)
  Receive Date: 20180615
  Receipt Date: 20180615
  Transmission Date: 20180711
  Serious: Yes (Other)
  Sender: FDA-Public Use
  Company Number: GR-DSJP-DSE-2018-123198

PATIENT

DRUGS (1)
  1. OLMESARTAN AND AMLODIPINE [Suspect]
     Active Substance: AMLODIPINE BESYLATE\OLMESARTAN MEDOXOMIL
     Indication: HYPERTENSION
     Dosage: UNK
     Route: 048

REACTIONS (4)
  - Sprue-like enteropathy [Recovered/Resolved]
  - Intestinal villi atrophy [Recovered/Resolved]
  - Rash maculo-papular [Recovering/Resolving]
  - Hypotension [Unknown]
